FAERS Safety Report 7026206-3 (Version None)
Quarter: 2010Q4

REPORT INFORMATION
  Report Type: 
  Country: None (occurrence: None)
  Receive Date: 20101004
  Receipt Date: 20100923
  Transmission Date: 20110411
  Serious: Yes (Hospitalization)
  Sender: FDA-Public Use
  Company Number: ES-ELI_LILLY_AND_COMPANY-ES200911004104

PATIENT
  Sex: Female
  Weight: 40 kg

DRUGS (13)
  1. PEMETREXED [Suspect]
     Indication: NON-SMALL CELL LUNG CANCER
     Dosage: 500 MG/M2, D1 EVERY 21 DAYS
     Route: 042
     Dates: start: 20091028, end: 20091113
  2. CETUXIMAB [Suspect]
     Indication: NON-SMALL CELL LUNG CANCER
     Dosage: 400 MG/M2, D1 CYCLE 1
     Route: 042
     Dates: start: 20091028, end: 20091028
  3. CETUXIMAB [Suspect]
     Dosage: 250 MG/M2, WEEKLY (1/W)
     Route: 042
     Dates: end: 20091113
  4. CISPLATIN [Suspect]
     Indication: NON-SMALL CELL LUNG CANCER
     Dosage: 75 MG/M2, D1 EVERY 21 DAYS
     Route: 042
     Dates: start: 20091028, end: 20091113
  5. FOLIC ACID [Concomitant]
     Indication: PROPHYLAXIS
     Dates: start: 20091020
  6. VIT B12 [Concomitant]
     Indication: PROPHYLAXIS
     Dates: start: 20091020
  7. DEXAMETHASONE [Concomitant]
     Indication: PROPHYLAXIS
     Dates: start: 20091029
  8. ANTIHISTAMINES [Concomitant]
     Indication: PROPHYLAXIS
     Dates: start: 20091028
  9. FUROSEMIDE [Concomitant]
     Indication: DIURETIC THERAPY
  10. OMEPRAZOLE [Concomitant]
     Indication: PROPHYLAXIS
  11. ENOXAPARIN SODIUM [Concomitant]
     Indication: THROMBOSIS PROPHYLAXIS
  12. SYMBICORT [Concomitant]
     Indication: CHRONIC OBSTRUCTIVE PULMONARY DISEASE
  13. PARACETAMOL [Concomitant]
     Indication: PAIN

REACTIONS (1)
  - DYSPNOEA [None]
